FAERS Safety Report 4378657-3 (Version None)
Quarter: 2004Q2

REPORT INFORMATION
  Report Type: 
  Country: None (occurrence: None)
  Receive Date: 20040610
  Receipt Date: 20040420
  Transmission Date: 20050107
  Serious: Yes (Hospitalization)
  Sender: FDA-Public Use
  Company Number: F01200401253

PATIENT
  Age: 76 Year
  Sex: Male

DRUGS (2)
  1. XATRAL               (ALFUZOSIN) [Suspect]
     Indication: BENIGN PROSTATIC HYPERPLASIA
     Route: 048
     Dates: start: 20040216, end: 20040221
  2. FLOMAX [Concomitant]

REACTIONS (6)
  - APPENDICEAL ABSCESS [None]
  - APPENDICITIS PERFORATED [None]
  - BENIGN PROSTATIC HYPERPLASIA [None]
  - DIARRHOEA [None]
  - DYSPNOEA [None]
  - VOMITING [None]
